FAERS Safety Report 8148037-3 (Version None)
Quarter: 2012Q1

REPORT INFORMATION
  Report Type: 
  Country: None (occurrence: None)
  Receive Date: 20120218
  Receipt Date: 20110414
  Transmission Date: 20120608
  Serious: No
  Sender: FDA-Public Use
  Company Number: US-ALLERGAN-1105219US

PATIENT
  Age: 60 Year
  Sex: Female

DRUGS (2)
  1. BOTULINUM TOXIN TYPE A [Suspect]
  2. BOTULINUM TOXIN TYPE A [Suspect]
     Indication: DYSTONIA
     Dosage: 15 UNITS, UNK
     Route: 030
     Dates: start: 20110406, end: 20110406

REACTIONS (2)
  - DIARRHOEA [None]
  - ABDOMINAL PAIN UPPER [None]
